FAERS Safety Report 11580168 (Version 3)
Quarter: 2017Q2

REPORT INFORMATION
  Report Type: Report from Study
  Country: None (occurrence: BR)
  Receive Date: 20150930
  Receipt Date: 20170616
  Transmission Date: 20170829
  Serious: Yes (Other)
  Sender: FDA-Public Use
  Company Number: BR-ABBVIE-15K-020-1470537-00

PATIENT
  Age: 58 Year
  Sex: Male
  Weight: 90 kg

DRUGS (10)
  1. HUMIRA [Suspect]
     Active Substance: ADALIMUMAB
     Route: 058
  2. METHOTREXATE. [Suspect]
     Active Substance: METHOTREXATE
     Indication: PSORIASIS
     Route: 065
     Dates: start: 201310
  3. ALUMINIUM W/MAGNESIUM HYDROXIDE/SIMETICONE [Concomitant]
     Indication: DYSPEPSIA
  4. HUMIRA [Suspect]
     Active Substance: ADALIMUMAB
     Route: 058
     Dates: start: 201503
  5. METHOTREXATE. [Suspect]
     Active Substance: METHOTREXATE
     Route: 065
     Dates: start: 201503
  6. ALUMINIUM W/MAGNESIUM HYDROXIDE/SIMETICONE [Concomitant]
     Indication: FLATULENCE
  7. HUMIRA [Suspect]
     Active Substance: ADALIMUMAB
     Indication: PSORIATIC ARTHROPATHY
     Route: 058
     Dates: start: 20140121, end: 2014
  8. MELOXICAM. [Concomitant]
     Active Substance: MELOXICAM
     Indication: PAIN
     Route: 048
  9. ALUMINIUM W/MAGNESIUM HYDROXIDE/SIMETICONE [Concomitant]
     Indication: DYSPEPSIA
     Dosage: LIQUID
     Route: 048
     Dates: start: 201705
  10. HUMIRA [Suspect]
     Active Substance: ADALIMUMAB
     Route: 058
     Dates: start: 20140306, end: 201502

REACTIONS (17)
  - Head injury [Unknown]
  - Immunodeficiency [Unknown]
  - Feeling hot [Recovering/Resolving]
  - Tooth discolouration [Unknown]
  - Toothache [Unknown]
  - Increased upper airway secretion [Recovered/Resolved]
  - Headache [Recovering/Resolving]
  - Dyspnoea [Unknown]
  - Skin wound [Not Recovered/Not Resolved]
  - Dyspepsia [Unknown]
  - Somnolence [Recovered/Resolved]
  - Skin exfoliation [Not Recovered/Not Resolved]
  - Feeling abnormal [Unknown]
  - Influenza [Recovered/Resolved]
  - Malaise [Recovering/Resolving]
  - Dizziness [Recovering/Resolving]
  - Reflux gastritis [Unknown]

NARRATIVE: CASE EVENT DATE: 201402
